FAERS Safety Report 12489467 (Version 1)
Quarter: 2016Q2

REPORT INFORMATION
  Report Type: Report from Study
  Country: US (occurrence: US)
  Receive Date: 20160622
  Receipt Date: 20160622
  Transmission Date: 20160815
  Serious: Yes (Other)
  Sender: FDA-Public Use
  Company Number: US-ABBVIE-16P-163-1647413-00

PATIENT
  Age: 44 Year
  Sex: Female
  Weight: 65.83 kg

DRUGS (3)
  1. VICODIN [Suspect]
     Active Substance: ACETAMINOPHEN\HYDROCODONE BITARTRATE
     Indication: PAIN MANAGEMENT
     Route: 065
  2. ZOLOFT [Concomitant]
     Active Substance: SERTRALINE HYDROCHLORIDE
     Indication: DEPRESSION
     Dosage: DAILY
     Route: 048
  3. LUPRON DEPOT [Suspect]
     Active Substance: LEUPROLIDE ACETATE
     Indication: ENDOMETRIOSIS
     Route: 050
     Dates: start: 201312, end: 201406

REACTIONS (11)
  - Pelvic pain [Recovered/Resolved]
  - Decreased appetite [Recovered/Resolved]
  - Urinary incontinence [Recovered/Resolved]
  - Endometriosis [Not Recovered/Not Resolved]
  - Decreased appetite [Recovered/Resolved]
  - Disturbance in attention [Unknown]
  - Pelvic pain [Recovered/Resolved]
  - Constipation [Unknown]
  - Endometriosis [Recovered/Resolved]
  - Endometriosis [Recovered/Resolved]
  - Pelvic pain [Recovered/Resolved]

NARRATIVE: CASE EVENT DATE: 2014
